FAERS Safety Report 8845983 (Version 1)
Quarter: 2012Q4

REPORT INFORMATION
  Report Type: 
  Country: US (occurrence: US)
  Receive Date: 20121017
  Receipt Date: 20121017
  Transmission Date: 20130627
  Serious: Yes (Other)
  Sender: FDA-Public Use
  Company Number: US-ROCHE-1112174

PATIENT
  Age: 14 Year
  Sex: Male

DRUGS (2)
  1. NUTROPIN [Suspect]
     Indication: BODY HEIGHT BELOW NORMAL
     Dosage: temporarily stopped
     Route: 050
     Dates: start: 20070405
  2. NUTROPIN [Suspect]
     Dosage: dose lowered
     Route: 050
     Dates: start: 200706

REACTIONS (4)
  - Brain oedema [Unknown]
  - Oedema peripheral [Recovered/Resolved]
  - Headache [Recovered/Resolved]
  - Pruritus [Recovered/Resolved]
